FAERS Safety Report 7907070-4 (Version None)
Quarter: 2011Q4

REPORT INFORMATION
  Report Type: 
  Country: None (occurrence: None)
  Receive Date: 20111110
  Receipt Date: 20111015
  Transmission Date: 20120403
  Serious: Yes (Life-Threatening, Hospitalization, Other)
  Sender: FDA-Public Use
  Company Number: US-BAYER-2011-022076

PATIENT
  Age: 31 Year
  Sex: Female
  Weight: 121 kg

DRUGS (3)
  1. MUCINEX DM [Concomitant]
     Dosage: UNK
     Dates: start: 20070605, end: 20070620
  2. YASMIN [Suspect]
     Indication: CONTRACEPTION
     Dosage: UNK
     Dates: start: 20060426, end: 20070516
  3. CEFTIN [Concomitant]
     Indication: UPPER RESPIRATORY TRACT INFECTION
     Dosage: UNK
     Dates: start: 20070605

REACTIONS (7)
  - HIGH DENSITY LIPOPROTEIN DECREASED [None]
  - THROMBOSIS [None]
  - PULMONARY EMBOLISM [None]
  - PAIN [None]
  - CARDIAC FAILURE [None]
  - LOW DENSITY LIPOPROTEIN INCREASED [None]
  - PLATELET COUNT INCREASED [None]
